FAERS Safety Report 10957235 (Version 1)
Quarter: 2015Q1

REPORT INFORMATION
  Report Type: Spontaneous
  Country: US (occurrence: US)
  Receive Date: 20150326
  Receipt Date: 20150326
  Transmission Date: 20150721
  Serious: No
  Sender: FDA-Public Use
  Company Number: US-SA-2015SA023348

PATIENT
  Sex: Female

DRUGS (6)
  1. AVONEX [Concomitant]
     Active Substance: INTERFERON BETA-1A
     Route: 030
     Dates: start: 20130928
  2. AVONEX [Concomitant]
     Active Substance: INTERFERON BETA-1A
     Dosage: LIQUID
     Route: 030
     Dates: start: 20080720
  3. AUBAGIO [Suspect]
     Active Substance: TERIFLUNOMIDE
     Indication: MULTIPLE SCLEROSIS
     Route: 065
  4. COPAXONE [Concomitant]
     Active Substance: GLATIRAMER ACETATE
     Indication: MULTIPLE SCLEROSIS
  5. AVONEX [Concomitant]
     Active Substance: INTERFERON BETA-1A
     Dosage: AVONEX PEN
     Dates: start: 20130830
  6. AVONEX [Concomitant]
     Active Substance: INTERFERON BETA-1A
     Dosage: AVONEX POWDER
     Route: 030
     Dates: end: 201411

REACTIONS (1)
  - Feeling abnormal [Recovered/Resolved]
